FAERS Safety Report 4610898-X (Version None)
Quarter: 2005Q2

REPORT INFORMATION
  Report Type: 
  Country: None (occurrence: None)
  Receive Date: 20050301
  Receipt Date: 20041104
  Transmission Date: 20051028
  Serious: Yes (Other)
  Sender: FDA-Public Use
  Company Number: 140609USA

PATIENT
  Sex: Female

DRUGS (1)
  1. TAMOXIFEN [Suspect]
     Indication: BREAST CANCER
     Dates: start: 20010201, end: 20040601

REACTIONS (5)
  - HEPATIC CANCER METASTATIC [None]
  - LIVER FUNCTION TEST ABNORMAL [None]
  - LYMPH NODE CANCER METASTATIC [None]
  - MASS [None]
  - THROMBOSIS [None]
